FAERS Safety Report 5479514-1 (Version None)
Quarter: 2007Q4

REPORT INFORMATION
  Report Type: 
  Country: None (occurrence: None)
  Receive Date: 20071008
  Receipt Date: 20070927
  Transmission Date: 20080405
  Serious: Yes (Life-Threatening)
  Sender: FDA-Public Use
  Company Number: JP-ROCHE-510769

PATIENT
  Age: 41 Year
  Sex: Male

DRUGS (4)
  1. LUPRAC [Suspect]
     Dosage: ADDITIONAL INDICATION: CARDIAC FAILURE.
     Route: 048
     Dates: start: 20050520, end: 20050526
  2. LUPRAC [Suspect]
     Route: 048
     Dates: start: 20050526, end: 20070527
  3. DIGOXIN [Concomitant]
     Route: 048
     Dates: start: 20050520
  4. RENIVACE [Concomitant]
     Route: 048
     Dates: start: 20050520

REACTIONS (1)
  - INTRACARDIAC THROMBUS [None]
